FAERS Safety Report 6015306-2 (Version None)
Quarter: 2008Q4

REPORT INFORMATION
  Report Type: 
  Country: None (occurrence: None)
  Receive Date: 20081218
  Receipt Date: 20081208
  Transmission Date: 20090506
  Serious: Yes (Hospitalization, Other)
  Sender: FDA-Public Use
  Company Number: 20085716

PATIENT
  Sex: Female

DRUGS (1)
  1. LIORESAL [Suspect]
     Indication: MUSCLE SPASTICITY
     Dosage: MCG, DAILY, INTRATHECAL
     Route: 037

REACTIONS (9)
  - DRUG LEVEL INCREASED [None]
  - HYPOTONIA [None]
  - JOINT RANGE OF MOTION DECREASED [None]
  - MUSCLE SPASTICITY [None]
  - MUSCULOSKELETAL PAIN [None]
  - NECK PAIN [None]
  - OXYGEN SATURATION DECREASED [None]
  - PROCEDURAL PAIN [None]
  - RESPIRATORY RATE DECREASED [None]
